FAERS Safety Report 5473437-X (Version None)
Quarter: 2007Q3

REPORT INFORMATION
  Report Type: 
  Country: None (occurrence: None)
  Receive Date: 20070828
  Receipt Date: 20061019
  Transmission Date: 20080115
  Serious: Yes (Disabling)
  Sender: FDA-Public Use
  Company Number: PHEH2006US09169

PATIENT
  Sex: Male

DRUGS (15)
  1. FAMVIR [Suspect]
     Indication: INFECTION
     Dosage: 400 MG, TID, ORAL
     Route: 048
     Dates: start: 20060628, end: 20060712
  2. NIASPAN [Concomitant]
  3. FOSAMAX [Concomitant]
  4. SYNTHROID [Concomitant]
  5. DIOVAN [Concomitant]
  6. ASPIRIN [Concomitant]
  7. METFORMIN HCL [Concomitant]
  8. VYTORIN [Concomitant]
  9. IBUPROFEN [Concomitant]
  10. CALCIUM [Concomitant]
  11. GLUCOSAMINE/CHONDROITIN/MSM(CHONDROITIN SULFATE, GLUCOSAMINE SULFATE, [Concomitant]
  12. GLEEVEC [Concomitant]
  13. VITAMIN D [Concomitant]
  14. PREDNISONE [Concomitant]
  15. SYNTHROID [Concomitant]

REACTIONS (1)
  - DRUG INEFFECTIVE [None]
